FAERS Safety Report 14145421 (Version 1)
Quarter: 2017Q4

REPORT INFORMATION
  Report Type: Spontaneous
  Country: US (occurrence: US)
  Receive Date: 20171031
  Receipt Date: 20171031
  Transmission Date: 20180321
  Serious: Yes (Other)
  Sender: FDA-Public Use
  Company Number: US-PFIZER INC-2017466523

PATIENT
  Age: 41 Year
  Sex: Male
  Weight: 70 kg

DRUGS (8)
  1. ACTIVATED CHARCOAL [Concomitant]
     Active Substance: ACTIVATED CHARCOAL
     Indication: MIOSIS
  2. ATROPINE. [Concomitant]
     Active Substance: ATROPINE
     Dosage: 1 MG, UNK
     Route: 042
  3. ATROPINE. [Concomitant]
     Active Substance: ATROPINE
     Dosage: 3 MG, UNK
     Route: 042
  4. NALOXONE [Concomitant]
     Active Substance: NALOXONE
     Indication: MIOSIS
     Dosage: 2 MG, UNK
     Route: 042
  5. ISOPROTERENOL HCL [Suspect]
     Active Substance: ISOPROTERENOL HYDROCHLORIDE
     Indication: BRADYCARDIA
     Dosage: UNK (DRIP)
     Route: 041
  6. NALOXONE [Concomitant]
     Active Substance: NALOXONE
     Indication: LETHARGY
  7. ACTIVATED CHARCOAL [Concomitant]
     Active Substance: ACTIVATED CHARCOAL
     Indication: LETHARGY
     Dosage: 50 G, UNK
     Route: 048
  8. ATROPINE. [Concomitant]
     Active Substance: ATROPINE
     Indication: SINUS BRADYCARDIA
     Dosage: 500 ML, UNK (BOLUS OF NORMAL SALINE)
     Route: 042

REACTIONS (1)
  - Chest pain [Recovering/Resolving]
